FAERS Safety Report 8564395 (Version 2)
Quarter: 2014Q1

REPORT INFORMATION
  Report Type: Report from Study
  Country: US (occurrence: US)
  Receive Date: 20120516
  Receipt Date: 20140325
  Transmission Date: 20141002
  Serious: Yes (Hospitalization)
  Sender: FDA-Public Use
  Company Number: US-ALEXION PHARMACEUTICALS INC.-A201101544

PATIENT
  Age: 74 Year
  Sex: Male

DRUGS (3)
  1. SOLIRIS 300MG [Suspect]
     Indication: PAROXYSMAL NOCTURNAL HAEMOGLOBINURIA
     Dosage: 900 MG, UNK
     Route: 042
  2. PLAVIX [Concomitant]
     Dosage: UNK
  3. EXJADE [Concomitant]
     Indication: ANTIPLATELET THERAPY
     Dosage: UNK

REACTIONS (3)
  - Anaemia [Recovered/Resolved]
  - Viral infection [Recovered/Resolved]
  - Haemolysis [Unknown]
